FAERS Safety Report 9808013 (Version 1)
Quarter: 2014Q1

REPORT INFORMATION
  Report Type: Spontaneous
  Country: CA (occurrence: CA)
  Receive Date: 20140110
  Receipt Date: 20140110
  Transmission Date: 20141002
  Serious: Yes (Other)
  Sender: FDA-Public Use
  Company Number: CA-JNJFOC-20140102042

PATIENT
  Sex: Male

DRUGS (5)
  1. KETOCONAZOLE [Suspect]
     Indication: PROSTATE CANCER METASTATIC
     Route: 065
  2. DOCETAXEL [Interacting]
     Indication: PROSTATE CANCER METASTATIC
     Route: 065
  3. PREDNISONE [Interacting]
     Indication: PROSTATE CANCER METASTATIC
     Route: 065
  4. AT-101 [Interacting]
     Indication: PROSTATE CANCER METASTATIC
     Route: 065
  5. PLACEBO [Interacting]
     Indication: PROSTATE CANCER METASTATIC
     Route: 065

REACTIONS (4)
  - Prostate cancer metastatic [Unknown]
  - Drug interaction [Unknown]
  - Drug intolerance [Unknown]
  - Off label use [Unknown]
